FAERS Safety Report 7190396-2 (Version None)
Quarter: 2010Q4

REPORT INFORMATION
  Report Type: 
  Country: None (occurrence: None)
  Receive Date: 20101223
  Receipt Date: 20101117
  Transmission Date: 20110411
  Serious: Yes (Other)
  Sender: FDA-Public Use
  Company Number: JP-PFIZER INC-2010151375

PATIENT
  Age: 60 Year
  Sex: Female

DRUGS (2)
  1. LIPITOR [Suspect]
     Indication: HYPERCHOLESTEROLAEMIA
     Dosage: UNK
     Route: 048
     Dates: start: 20100701, end: 20101110
  2. WARFARIN [Suspect]
     Indication: CARDIAC VALVE DISEASE
     Dosage: UNK
     Route: 048
     Dates: start: 20000101, end: 20101110

REACTIONS (4)
  - ANAEMIA [None]
  - COAGULATION TEST ABNORMAL [None]
  - HAEMORRHAGE SUBCUTANEOUS [None]
  - HELICOBACTER INFECTION [None]
